FAERS Safety Report 18372715 (Version 4)
Quarter: 2021Q4

REPORT INFORMATION
  Report Type: Spontaneous
  Country: US (occurrence: US)
  Receive Date: 20201012
  Receipt Date: 20211229
  Transmission Date: 20220303
  Serious: No
  Sender: FDA-Public Use
  Company Number: US-PFIZER INC-2020391379

PATIENT
  Age: 69 Year
  Sex: Female

DRUGS (1)
  1. IBRANCE [Suspect]
     Active Substance: PALBOCICLIB
     Indication: Breast cancer female
     Dosage: 125 MG, DAILY

REACTIONS (5)
  - Constipation [Unknown]
  - Arthropathy [Unknown]
  - Arthritis [Unknown]
  - Sensitivity to weather change [Unknown]
  - Dysphonia [Unknown]
